FAERS Safety Report 5808238-3 (Version None)
Quarter: 2008Q3

REPORT INFORMATION
  Report Type: 
  Country: None (occurrence: None)
  Receive Date: 20080709
  Receipt Date: 20080627
  Transmission Date: 20090109
  Serious: Yes (Death)
  Sender: FDA-Public Use
  Company Number: 14598

PATIENT
  Age: 37 Year
  Sex: Male

DRUGS (11)
  1. MORPHINE SULFATE [Suspect]
     Indication: PAIN MANAGEMENT
     Dosage: 30 MG BID ORALLY
     Route: 048
     Dates: start: 20080401, end: 20080403
  2. MIRALAX [Concomitant]
  3. FERROUS SULFATE TAB [Concomitant]
  4. AMITRIPTYLINE HCL [Concomitant]
  5. URECHOLINE [Concomitant]
  6. NASONEX [Concomitant]
  7. PROZAC [Concomitant]
  8. TRAMADOL HCL [Concomitant]
  9. MS CONTIN [Concomitant]
  10. PERCOCET [Concomitant]
  11. ALPRAZOLAM [Concomitant]

REACTIONS (6)
  - CHILLS [None]
  - CONFUSIONAL STATE [None]
  - DYSARTHRIA [None]
  - OPIATES [None]
  - PHARMACEUTICAL PRODUCT COMPLAINT [None]
  - PYREXIA [None]
